FAERS Safety Report 13162910 (Version 8)
Quarter: 2017Q2

REPORT INFORMATION
  Report Type: Report from Study
  Country: US (occurrence: US)
  Receive Date: 20170130
  Receipt Date: 20170511
  Transmission Date: 20170830
  Serious: Yes (Life-Threatening, Hospitalization, Other)
  Sender: FDA-Public Use
  Company Number: PHHO2017US001590

PATIENT
  Age: 65 Year
  Sex: Male
  Weight: 97.6 kg

DRUGS (8)
  1. ACZ885 [Suspect]
     Active Substance: CANAKINUMAB
     Indication: CARDIOVASCULAR EVENT PROPHYLAXIS
     Dosage: 150 MG, UNK
     Route: 048
     Dates: start: 20130411, end: 20160922
  2. ALBUTEROL SULFATE. [Concomitant]
     Active Substance: ALBUTEROL SULFATE
     Indication: WHEEZING
     Dosage: 2 U, PRN
     Route: 065
     Dates: start: 20110106
  3. RANEXA [Concomitant]
     Active Substance: RANOLAZINE
     Indication: ANGINA PECTORIS
     Dosage: 500 MG, BID
     Route: 048
     Dates: start: 20150423
  4. NOVOLOG [Concomitant]
     Active Substance: INSULIN ASPART
     Indication: TYPE 2 DIABETES MELLITUS
     Dosage: VARIES SLIDING SCALE
     Route: 065
     Dates: start: 20150423
  5. ISOSORBIDE. [Concomitant]
     Active Substance: ISOSORBIDE
     Indication: CORONARY ARTERY DISEASE
     Dosage: 120 MG, QD
     Route: 048
     Dates: start: 20130115
  6. ACZ885 [Suspect]
     Active Substance: CANAKINUMAB
     Dosage: 1 RIGHT AND 1 LEFT
     Route: 048
     Dates: end: 20160922
  7. LANTUS [Concomitant]
     Active Substance: INSULIN GLARGINE
     Indication: TYPE 2 DIABETES MELLITUS
     Dosage: 75 U, QD
     Route: 058
     Dates: start: 20140708
  8. LISINOPRIL. [Concomitant]
     Active Substance: LISINOPRIL
     Indication: HYPERTENSION
     Dosage: 20 MG, QD
     Route: 048
     Dates: start: 20130115

REACTIONS (1)
  - Diffuse large B-cell lymphoma stage IV [Recovering/Resolving]

NARRATIVE: CASE EVENT DATE: 20170108
